FAERS Safety Report 8510385 (Version 2)
Quarter: 2013Q3

REPORT INFORMATION
  Report Type: Spontaneous
  Country: US (occurrence: US)
  Receive Date: 20120413
  Receipt Date: 20130920
  Transmission Date: 20140515
  Serious: Yes (Other)
  Sender: FDA-Public Use
  Company Number: US-ROCHE-794056

PATIENT
  Sex: Female
  Weight: 113.05 kg

DRUGS (1)
  1. ACCUTANE [Suspect]
     Indication: ACNE
     Dosage: INGESTED FROM APPROX SUMMER OF 1997 THRU WINTER OF 1998.
     Route: 065
     Dates: start: 1997, end: 1998

REACTIONS (4)
  - Inflammatory bowel disease [Unknown]
  - Irritable bowel syndrome [Unknown]
  - Generalised anxiety disorder [Unknown]
  - Bipolar disorder [Unknown]
